FAERS Safety Report 7911486-X (Version None)
Quarter: 2011Q4

REPORT INFORMATION
  Report Type: 
  Country: None (occurrence: None)
  Receive Date: 20111114
  Receipt Date: 20111105
  Transmission Date: 20120403
  Serious: No
  Sender: FDA-Public Use
  Company Number: US-B.I. PHARMACEUTICALS,INC./RIDGEFIELD-2011-BP-25689BP

PATIENT
  Age: 68 Year
  Sex: Female

DRUGS (3)
  1. COMBIVENT [Concomitant]
     Indication: ASTHMA
  2. XOPENEX [Concomitant]
     Indication: ASTHMA
  3. SPIRIVA [Suspect]
     Indication: ASTHMA
     Dosage: 18 MCG
     Route: 055
     Dates: start: 20111031

REACTIONS (3)
  - ASTHMA [None]
  - DRUG INEFFECTIVE [None]
  - HEART RATE INCREASED [None]
